FAERS Safety Report 24153720 (Version 1)
Quarter: 2024Q3

REPORT INFORMATION
  Report Type: Spontaneous
  Country: CA (occurrence: CA)
  Receive Date: 20240730
  Receipt Date: 20240730
  Transmission Date: 20241016
  Serious: Yes (Hospitalization, Other)
  Sender: SANOFI AVENTIS
  Company Number: CA-SA-2024SA217972

PATIENT
  Age: 75 Year
  Sex: Male

DRUGS (4)
  1. CLOPIDOGREL BISULFATE [Suspect]
     Active Substance: CLOPIDOGREL BISULFATE
     Indication: Antiplatelet therapy
     Dosage: UNK UNK, QD
  2. ASPIRIN [Suspect]
     Active Substance: ASPIRIN
     Indication: Antiplatelet therapy
     Dosage: UNK UNK, QD
  3. WARFARIN SODIUM [Suspect]
     Active Substance: WARFARIN SODIUM
     Indication: Anticoagulant therapy
     Route: 048
  4. WARFARIN SODIUM [Suspect]
     Active Substance: WARFARIN SODIUM
     Dosage: 4 MG, QD
     Route: 048

REACTIONS (2)
  - Contusion [Unknown]
  - Gastrointestinal haemorrhage [Unknown]
